FAERS Safety Report 8090612-9 (Version None)
Quarter: 2012Q1

REPORT INFORMATION
  Report Type: 
  Country: None (occurrence: None)
  Receive Date: 20120129
  Receipt Date: 20111120
  Transmission Date: 20120608
  Serious: No
  Sender: FDA-Public Use
  Company Number: US-ABBOTT-11P-163-0876397-00

PATIENT
  Age: 56 Year
  Sex: Female

DRUGS (16)
  1. ASPIRIN [Concomitant]
     Indication: PROPHYLAXIS
     Dosage: DAILY
  2. HYDROCHLOROTHIAZIDE [Concomitant]
     Indication: HYPERTENSION
     Dosage: DAILY
  3. LOVAZA [Concomitant]
     Indication: PRODUCT USED FOR UNKNOWN INDICATION
  4. VITAMIN E [Concomitant]
     Indication: VITAMIN SUPPLEMENTATION
  5. ARIMIDEX [Concomitant]
     Indication: NEOPLASM MALIGNANT
     Dosage: DAILY
  6. HUMIRA [Suspect]
     Indication: PSORIATIC ARTHROPATHY
     Dates: start: 20111120
  7. OMEPRAZOLE [Concomitant]
     Indication: GASTROOESOPHAGEAL REFLUX DISEASE
     Dosage: DAILY
  8. FLEXERIL [Concomitant]
     Indication: RHEUMATOID ARTHRITIS
     Dosage: DAILY
  9. LISINOPRIL [Concomitant]
     Indication: HYPERTENSION
     Dosage: DAILY
  10. MAGNESIUM [Concomitant]
     Indication: PRODUCT USED FOR UNKNOWN INDICATION
  11. LIVALO [Concomitant]
     Indication: BLOOD CHOLESTEROL
     Dosage: DAILY
  12. ATENOLOL [Concomitant]
     Indication: HYPERTENSION
     Dosage: DAILY
  13. CALCIUM [Concomitant]
     Indication: PRODUCT USED FOR UNKNOWN INDICATION
  14. KLOR-CON [Concomitant]
     Indication: MINERAL SUPPLEMENTATION
     Dosage: DAILY
  15. FOLIC ACID [Concomitant]
     Indication: VITAMIN SUPPLEMENTATION
     Dosage: DAILY
  16. VITAMIN D [Concomitant]
     Indication: PRODUCT USED FOR UNKNOWN INDICATION

REACTIONS (3)
  - BACK PAIN [None]
  - PAIN [None]
  - FLATULENCE [None]
